FAERS Safety Report 16728619 (Version 1)
Quarter: 2019Q3

REPORT INFORMATION
  Report Type: Spontaneous
  Country: CA (occurrence: CA)
  Receive Date: 20190822
  Receipt Date: 20190822
  Transmission Date: 20191005
  Serious: Yes (Hospitalization, Other)
  Sender: FDA-Public Use
  Company Number: CA-AUROBINDO-AUR-APL-2019-054708

PATIENT

DRUGS (16)
  1. QUETIAPINE FILM-COATED TABLET [Suspect]
     Active Substance: QUETIAPINE
     Dosage: 100.0 MILLIGRAM
     Route: 065
  2. QUETIAPINE. [Suspect]
     Active Substance: QUETIAPINE
     Indication: PRODUCT USED FOR UNKNOWN INDICATION
     Dosage: 200.0 MILLIGRAM, DAILY
     Route: 065
  3. APO-CLOZAPINE [Suspect]
     Active Substance: CLOZAPINE
     Dosage: 400.0 MILLIGRAM, DAILY
     Route: 065
  4. APO-CLOZAPINE [Suspect]
     Active Substance: CLOZAPINE
     Dosage: 25.0 MILLIGRAM
     Route: 048
  5. VENLAFAXINE [Concomitant]
     Active Substance: VENLAFAXINE HYDROCHLORIDE
     Indication: MAJOR DEPRESSION
     Dosage: 225.0 MILLIGRAM, DAILY
     Route: 065
  6. QUETIAPINE FILM-COATED TABLET [Suspect]
     Active Substance: QUETIAPINE
     Indication: MAJOR DEPRESSION
     Dosage: 50.0 MILLIGRAM, FOUR TIMES/DAY
     Route: 065
  7. APO-CLOZAPINE [Suspect]
     Active Substance: CLOZAPINE
     Dosage: 200.0 MILLIGRAM, DAILY
     Route: 065
  8. CLOZAPINE. [Suspect]
     Active Substance: CLOZAPINE
     Indication: MAJOR DEPRESSION
     Dosage: 500.0 MILLIGRAM, DAILY
     Route: 065
  9. APO-CLOZAPINE [Suspect]
     Active Substance: CLOZAPINE
     Dosage: 350.0 MILLIGRAM, DAILY
     Route: 065
  10. APO-CLOZAPINE [Suspect]
     Active Substance: CLOZAPINE
     Dosage: 400.0 MILLIGRAM, DAILY
     Route: 048
  11. RISPERIDONE. [Suspect]
     Active Substance: RISPERIDONE
     Indication: PRODUCT USED FOR UNKNOWN INDICATION
     Dosage: UNK
     Route: 065
  12. APO-CLOZAPINE [Suspect]
     Active Substance: CLOZAPINE
     Indication: PRODUCT USED FOR UNKNOWN INDICATION
     Dosage: 500.0 MILLIGRAM, DAILY
     Route: 048
  13. VENLAFAXINE HYDROCHLORIDE. [Concomitant]
     Active Substance: VENLAFAXINE HYDROCHLORIDE
     Indication: PRODUCT USED FOR UNKNOWN INDICATION
     Dosage: 300.0 MILLIGRAM, DAILY
     Route: 065
  14. OLANZAPINE. [Suspect]
     Active Substance: OLANZAPINE
     Indication: MAJOR DEPRESSION
     Dosage: 20.0 MILLIGRAM, DAILY
     Route: 065
  15. APO-CLOZAPINE [Suspect]
     Active Substance: CLOZAPINE
     Dosage: 200.0 MILLIGRAM, DAILY
     Route: 048
  16. APO-CLOZAPINE [Suspect]
     Active Substance: CLOZAPINE
     Dosage: 400.0 MILLIGRAM, DAILY
     Route: 065

REACTIONS (9)
  - Retching [Not Recovered/Not Resolved]
  - Constipation [Not Recovered/Not Resolved]
  - Gastric infection [Not Recovered/Not Resolved]
  - Salivary hypersecretion [Not Recovered/Not Resolved]
  - Abdominal pain [Not Recovered/Not Resolved]
  - Sedation [Not Recovered/Not Resolved]
  - Rebound effect [Not Recovered/Not Resolved]
  - Pain [Not Recovered/Not Resolved]
  - Muscle rigidity [Not Recovered/Not Resolved]
